FAERS Safety Report 23894890 (Version 1)
Quarter: 2024Q2

REPORT INFORMATION
  Report Type: Spontaneous
  Country: FR (occurrence: FR)
  Receive Date: 20240524
  Receipt Date: 20240524
  Transmission Date: 20240716
  Serious: Yes (Hospitalization, Other)
  Sender: FDA-Public Use
  Company Number: FR-VALIDUS PHARMACEUTICALS LLC-FR-VDP-2024-019255

PATIENT

DRUGS (3)
  1. FUROSEMIDE [Suspect]
     Active Substance: FUROSEMIDE
     Indication: Weight decreased
     Dosage: 160 MG, QD
     Route: 048
     Dates: end: 20240416
  2. BACLOFEN [Suspect]
     Active Substance: BACLOFEN
     Indication: Weight decreased
     Dosage: 60 MG, QD
     Route: 048
     Dates: end: 20240416
  3. OXAZEPAM [Suspect]
     Active Substance: OXAZEPAM
     Indication: Weight decreased
     Dosage: 10 MG, QD
     Route: 048
     Dates: end: 20240416

REACTIONS (2)
  - Seizure [Recovered/Resolved]
  - Hypokalaemia [Recovered/Resolved]

NARRATIVE: CASE EVENT DATE: 20240416
